FAERS Safety Report 5161480-X (Version None)
Quarter: 2006Q4

REPORT INFORMATION
  Report Type: 
  Country: None (occurrence: None)
  Receive Date: 20061130
  Receipt Date: 20060818
  Transmission Date: 20070319
  Serious: No
  Sender: FDA-Public Use
  Company Number: US-GLAXOSMITHKLINE-A0617275A

PATIENT
  Age: 67 Year
  Sex: Female

DRUGS (5)
  1. WELLBUTRIN XL [Suspect]
     Indication: DEPRESSION
     Dosage: 150MG PER DAY
     Route: 048
     Dates: start: 20060815, end: 20060817
  2. EFFEXOR XR [Suspect]
     Dosage: 150MG PER DAY
     Dates: end: 20060814
  3. DIOVAN [Concomitant]
  4. LASIX [Concomitant]
  5. TRICOR [Concomitant]

REACTIONS (5)
  - ERUCTATION [None]
  - EUPHORIC MOOD [None]
  - FREQUENT BOWEL MOVEMENTS [None]
  - NAUSEA [None]
  - SOMNOLENCE [None]
